FAERS Safety Report 19394939 (Version 1)
Quarter: 2021Q2

REPORT INFORMATION
  Report Type: Spontaneous
  Country: CA (occurrence: CA)
  Receive Date: 20210609
  Receipt Date: 20210609
  Transmission Date: 20210717
  Serious: Yes (Hospitalization)
  Sender: FDA-Public Use
  Company Number: CA-LUPIN PHARMACEUTICALS INC.-2021-09024

PATIENT
  Age: 72 Year
  Sex: Male

DRUGS (13)
  1. SULFAMETHOXAZOLE AND TRIMETHOPRIM [Suspect]
     Active Substance: SULFAMETHOXAZOLE\TRIMETHOPRIM
     Indication: STENOTROPHOMONAS INFECTION
     Dosage: UNK UNK, TID (TWO DOUBLE STRENGTH TABLETS)
     Route: 065
  2. HYDROCORTISONE. [Suspect]
     Active Substance: HYDROCORTISONE
     Indication: HYPOGLYCAEMIA
     Dosage: 100 MILLIGRAM (ALONG WITH 10% DEXTROSE WAS STARTED AT 100 ML/HOUR.)
     Route: 042
  3. GLUCAGON. [Suspect]
     Active Substance: GLUCAGON
     Indication: HYPOGLYCAEMIA
     Dosage: 1 MILLIGRAM
     Route: 030
  4. AMOXICILLIN AND CLAVULANATE POTASSIUM [Concomitant]
     Active Substance: AMOXICILLIN\CLAVULANATE POTASSIUM
     Indication: KLEBSIELLA INFECTION
     Dosage: UNK
     Route: 048
  5. AMOXICILLIN AND CLAVULANATE POTASSIUM [Concomitant]
     Active Substance: AMOXICILLIN\CLAVULANATE POTASSIUM
     Indication: STENOTROPHOMONAS INFECTION
  6. DEXTROSE. [Suspect]
     Active Substance: DEXTROSE
     Indication: HYPOGLYCAEMIA
     Dosage: 250 MILLILITER
     Route: 042
  7. DEXTROSE. [Suspect]
     Active Substance: DEXTROSE
     Dosage: 12.5 MILLIGRAM
     Route: 048
  8. PIPERACILLIN/TAZOBACTAM [Concomitant]
     Active Substance: PIPERACILLIN SODIUM\TAZOBACTAM SODIUM
     Indication: KLEBSIELLA INFECTION
     Dosage: UNK
     Route: 042
  9. SULFAMETHOXAZOLE AND TRIMETHOPRIM [Suspect]
     Active Substance: SULFAMETHOXAZOLE\TRIMETHOPRIM
     Indication: KLEBSIELLA INFECTION
     Dosage: 960 MILLIGRAM, QD
     Route: 042
  10. DEXTROSE. [Suspect]
     Active Substance: DEXTROSE
     Dosage: 37.5 MILLIGRAM
     Route: 048
  11. PIPERACILLIN/TAZOBACTAM [Concomitant]
     Active Substance: PIPERACILLIN SODIUM\TAZOBACTAM SODIUM
     Indication: STENOTROPHOMONAS INFECTION
  12. DEXTROSE. [Suspect]
     Active Substance: DEXTROSE
     Dosage: 100 ML/H
     Route: 042
  13. GLUCOSE [Suspect]
     Active Substance: DEXTROSE
     Indication: HYPOGLYCAEMIA
     Dosage: UNK
     Route: 048

REACTIONS (4)
  - Hypoglycaemia [Recovered/Resolved]
  - Physical deconditioning [Recovered/Resolved]
  - Drug ineffective [Unknown]
  - Malnutrition [Recovered/Resolved]
